FAERS Safety Report 6789471 (Version 2)
Quarter: 2018Q4

REPORT INFORMATION
  Report Type: Spontaneous
  Country: NO (occurrence: NO)
  Receive Date: 20081016
  Receipt Date: 20181219
  Transmission Date: 20190205
  Serious: Yes (Hospitalization)
  Sender: FDA-Public Use
  Company Number: NO-ASTRAZENECA-2008SE04695

PATIENT
  Age: 64 Year
  Sex: Male

DRUGS (7)
  1. ALBYL-E [Interacting]
     Active Substance: ASPIRIN\MAGNESIUM OXIDE
     Indication: CORONARY ARTERY DISEASE
     Route: 048
  2. AMARYL [Concomitant]
     Active Substance: GLIMEPIRIDE
     Indication: DIABETES MELLITUS
     Route: 048
  3. GLUCOPHAGE [Concomitant]
     Active Substance: METFORMIN HYDROCHLORIDE
     Indication: DIABETES MELLITUS
     Route: 048
  4. SIMVASTATIN. [Concomitant]
     Active Substance: SIMVASTATIN
     Indication: HYPERCHOLESTEROLAEMIA
     Route: 048
  5. METOPROLOL TARTRATE. [Concomitant]
     Active Substance: METOPROLOL TARTRATE
     Indication: CORONARY ARTERY DISEASE
     Route: 048
  6. HYDROCHLOROTHIAZIDE AND LISINOPRIL [Suspect]
     Active Substance: HYDROCHLOROTHIAZIDE\LISINOPRIL
     Indication: CORONARY ARTERY DISEASE
     Route: 048
  7. IBUPROFEN. [Interacting]
     Active Substance: IBUPROFEN
     Indication: PAIN
     Route: 048
     Dates: start: 20080125, end: 20080128

REACTIONS (3)
  - Acute kidney injury [Recovering/Resolving]
  - Overdose [Unknown]
  - Drug interaction [Recovering/Resolving]

NARRATIVE: CASE EVENT DATE: 20080128
